FAERS Safety Report 8281414-9 (Version None)
Quarter: 2012Q2

REPORT INFORMATION
  Report Type: 
  Country: None (occurrence: None)
  Receive Date: 20120411
  Receipt Date: 20120411
  Transmission Date: 20120825
  Serious: Yes (Other)
  Sender: FDA-Public Use
  Company Number: None

PATIENT
  Age: 26 Year
  Sex: Female
  Weight: 125.1 kg

DRUGS (16)
  1. ACTIGALL [Concomitant]
  2. AMBIEN [Concomitant]
  3. CITALOPRAM [Concomitant]
  4. LANTUS [Concomitant]
  5. NOVOLOG [Concomitant]
  6. DILAUDID [Concomitant]
  7. LOVAZA [Concomitant]
  8. PREDNISONE TAB [Concomitant]
  9. ZYPREXA [Concomitant]
  10. BACTRIM [Concomitant]
  11. OMEPRAZOLE [Concomitant]
  12. TACROLIMUS [Concomitant]
  13. PROLEUKIN [Suspect]
     Indication: GRAFT VERSUS HOST DISEASE
     Dosage: 1.0X10^6 IU/M^2 ONCE DAILY SUBCUTANEOUS INJECTION
     Route: 058
     Dates: start: 20111028, end: 20120223
  14. ACYCLOVIR [Concomitant]
  15. ATIVAN [Concomitant]
  16. PRAVASTATIN [Concomitant]

REACTIONS (1)
  - BLOOD GLUCOSE INCREASED [None]
